FAERS Safety Report 8082847-6 (Version None)
Quarter: 2012Q1

REPORT INFORMATION
  Report Type: 
  Country: None (occurrence: None)
  Receive Date: 20120127
  Receipt Date: 20110125
  Transmission Date: 20120608
  Serious: No
  Sender: FDA-Public Use
  Company Number: US-ABBOTT-11P-163-0700451-00

PATIENT
  Age: 55 Year
  Sex: Male

DRUGS (17)
  1. LOPRESSOR [Concomitant]
     Indication: HYPERTENSION
  2. OXYCODONE HCL [Concomitant]
     Indication: PAIN
     Dosage: 10/325MG
  3. HUMIRA [Suspect]
     Indication: RHEUMATOID ARTHRITIS
     Dates: start: 20101101
  4. LIPITOR [Concomitant]
     Indication: PRODUCT USED FOR UNKNOWN INDICATION
  5. ASPIRIN [Concomitant]
     Indication: PRODUCT USED FOR UNKNOWN INDICATION
  6. PREDNISONE TAB [Concomitant]
     Indication: PRODUCT USED FOR UNKNOWN INDICATION
  7. ATIVAN [Concomitant]
     Indication: INSOMNIA
  8. NOVOLOG [Concomitant]
     Indication: BLOOD GLUCOSE ABNORMAL
     Dosage: 5 UNITS/ML PER DAY
  9. VITAMIN B-12 [Concomitant]
     Indication: PRODUCT USED FOR UNKNOWN INDICATION
  10. DIOVAN [Concomitant]
     Indication: PRODUCT USED FOR UNKNOWN INDICATION
  11. NEXIUM [Concomitant]
     Indication: PRODUCT USED FOR UNKNOWN INDICATION
  12. RESTORIL [Concomitant]
     Indication: INSOMNIA
  13. B6 [Concomitant]
     Indication: PRODUCT USED FOR UNKNOWN INDICATION
  14. LANTUS [Concomitant]
     Indication: PRODUCT USED FOR UNKNOWN INDICATION
  15. LEVOTHYROXINE SODIUM [Concomitant]
     Indication: PRODUCT USED FOR UNKNOWN INDICATION
  16. METOFORMIN [Concomitant]
     Indication: PRODUCT USED FOR UNKNOWN INDICATION
  17. FOLIC ACID [Concomitant]
     Indication: PRODUCT USED FOR UNKNOWN INDICATION

REACTIONS (4)
  - INFLUENZA [None]
  - DIARRHOEA [None]
  - NAUSEA [None]
  - PAIN [None]
